FAERS Safety Report 19389503 (Version 2)
Quarter: 2021Q3

REPORT INFORMATION
  Report Type: Spontaneous
  Country: DE (occurrence: DE)
  Receive Date: 20210608
  Receipt Date: 20210825
  Transmission Date: 20211014
  Serious: Yes (Hospitalization)
  Sender: FDA-Public Use
  Company Number: DE-DRREDDYS-GER/GER/21/0136409

PATIENT
  Age: 12 Year
  Sex: Male
  Weight: 38 kg

DRUGS (1)
  1. ATOMOXETIN BETA 25 MG HARTKAPSELN [Suspect]
     Active Substance: ATOMOXETINE HYDROCHLORIDE
     Indication: ATTENTION DEFICIT HYPERACTIVITY DISORDER
     Route: 048
     Dates: start: 20210209, end: 20210415

REACTIONS (1)
  - Eyelid ptosis [Not Recovered/Not Resolved]

NARRATIVE: CASE EVENT DATE: 20210518
